FAERS Safety Report 5572794-3 (Version None)
Quarter: 2007Q4

REPORT INFORMATION
  Report Type: 
  Country: None (occurrence: None)
  Receive Date: 20071223
  Receipt Date: 20071214
  Transmission Date: 20080405
  Serious: No
  Sender: FDA-Public Use
  Company Number: PHBS2007BR15134

PATIENT
  Age: 52 Year
  Sex: Female

DRUGS (2)
  1. ZELMAC [Suspect]
     Indication: IRRITABLE BOWEL SYNDROME
     Dates: end: 20060901
  2. MACROGOL [Concomitant]

REACTIONS (2)
  - BRONCHOSPASM [None]
  - URTICARIA [None]
